FAERS Safety Report 9069543 (Version 1)
Quarter: 2013Q1

REPORT INFORMATION
  Report Type: Spontaneous
  Country: US (occurrence: US)
  Receive Date: 20130215
  Receipt Date: 20130215
  Transmission Date: 20140127
  Serious: Yes (Death, Other)
  Sender: FDA-Public Use
  Company Number: US-MPIJNJ-2013-01280

PATIENT
  Sex: Male

DRUGS (2)
  1. VELCADE [Suspect]
     Indication: CHRONIC GRANULOMATOUS DISEASE
     Dosage: 1.3 MG/M2, CYCLIC
     Route: 042
  2. RITUXIMAB [Suspect]
     Indication: CHRONIC GRANULOMATOUS DISEASE
     Dosage: UNK
     Route: 065

REACTIONS (4)
  - Adenovirus infection [Fatal]
  - Atypical mycobacterial infection [Fatal]
  - Adenoviral haemorrhagic cystitis [Unknown]
  - Off label use [Unknown]
